FAERS Safety Report 16760551 (Version 1)
Quarter: 2019Q3

REPORT INFORMATION
  Report Type: Spontaneous
  Country: US (occurrence: US)
  Receive Date: 20190830
  Receipt Date: 20190830
  Transmission Date: 20191005
  Serious: Yes (Other)
  Sender: FDA-Public Use
  Company Number: US-ELI_LILLY_AND_COMPANY-US201908009839

PATIENT
  Sex: Male

DRUGS (2)
  1. HUMULIN R [Suspect]
     Active Substance: INSULIN HUMAN
     Indication: TYPE 2 DIABETES MELLITUS
     Dosage: FROM 2 U TO 14 U, USING DEXCOM PUMP
     Route: 058
     Dates: start: 2017
  2. HUMULIN R [Suspect]
     Active Substance: INSULIN HUMAN
     Indication: TYPE 2 DIABETES MELLITUS
     Dosage: FROM 2 U TO 14 U, USING DEXCOM PUMP ALSO USING SYRINGE
     Route: 058
     Dates: start: 2017

REACTIONS (3)
  - Incorrect dose administered [Unknown]
  - Blood glucose decreased [Unknown]
  - Malaise [Unknown]
